FAERS Safety Report 6013970-5 (Version None)
Quarter: 2008Q4

REPORT INFORMATION
  Report Type: 
  Country: None (occurrence: None)
  Receive Date: 20081219
  Receipt Date: 20081208
  Transmission Date: 20090506
  Serious: Yes (Other)
  Sender: FDA-Public Use
  Company Number: DE-PFIZER INC-2008100979

PATIENT

DRUGS (2)
  1. DOSTINEX [Suspect]
     Indication: PROLACTINOMA
     Dosage: 0.25 MG TWICE PER WEEK
     Route: 048
     Dates: start: 20001101
  2. DOSTINEX [Suspect]
     Dosage: 0.25 MG THREE TIMES PER WEEK
     Route: 048

REACTIONS (3)
  - ALANINE AMINOTRANSFERASE INCREASED [None]
  - GAMMA-GLUTAMYLTRANSFERASE INCREASED [None]
  - LIVER FUNCTION TEST ABNORMAL [None]
